FAERS Safety Report 15799793 (Version 2)
Quarter: 2019Q1

REPORT INFORMATION
  Report Type: Spontaneous
  Country: CA (occurrence: CA)
  Receive Date: 20190108
  Receipt Date: 20190111
  Transmission Date: 20190417
  Serious: Yes (Other)
  Sender: FDA-Public Use
  Company Number: CA-PFIZER INC-2015301937

PATIENT
  Age: 32 Year
  Sex: Female

DRUGS (10)
  1. ISOFLURANE. [Suspect]
     Active Substance: ISOFLURANE
     Dosage: 1 %, UNK
  2. VALPROIC ACID. [Suspect]
     Active Substance: VALPROIC ACID
     Dosage: 500 MG, 1 EVERY 6 HOURS
     Route: 050
  3. PHENYTOIN SODIUM. [Suspect]
     Active Substance: PHENYTOIN SODIUM
     Dosage: 500 MG, 1 EVERY ONE DAY
     Route: 042
  4. LIDOCAINE. [Suspect]
     Active Substance: LIDOCAINE
     Dosage: 4 MG, 1 EVERY 1 MINUTE
     Route: 061
  5. PHENOBARBITAL. [Suspect]
     Active Substance: PHENOBARBITAL
     Dosage: 40 MG, 1 EVERY 1 HOUR
     Route: 042
  6. DIAZEPAM. [Suspect]
     Active Substance: DIAZEPAM
     Dosage: 100 MG ONE EVERY 1 HOURS
     Route: 040
  7. LORAZEPAM. [Suspect]
     Active Substance: LORAZEPAM
     Route: 040
  8. DOPAMINE HCL [Concomitant]
     Active Substance: DOPAMINE HYDROCHLORIDE
  9. PARALDEHYDE [Suspect]
     Active Substance: PARALDEHYDE
     Dosage: 500 ML, UNK
  10. PHENOBARBITAL. [Suspect]
     Active Substance: PHENOBARBITAL
     Dosage: 160 MG, 1 EVERY 4 HOURS
     Route: 042

REACTIONS (3)
  - Drug ineffective [Unknown]
  - Hypotension [Unknown]
  - Status epilepticus [Unknown]
